FAERS Safety Report 22118049 (Version 1)
Quarter: 2023Q1

REPORT INFORMATION
  Report Type: Spontaneous
  Country: US (occurrence: US)
  Receive Date: 20230321
  Receipt Date: 20230321
  Transmission Date: 20230418
  Serious: Yes (Other)
  Sender: FDA-Public Use
  Company Number: US-009507513-2303USA006192

PATIENT
  Age: 67 Year
  Sex: Male

DRUGS (1)
  1. KEYTRUDA [Suspect]
     Active Substance: PEMBROLIZUMAB
     Indication: Gastrointestinal melanoma
     Dosage: EVERY 3 WEEKS
     Route: 042
     Dates: start: 202211

REACTIONS (3)
  - Intestinal haemorrhage [Not Recovered/Not Resolved]
  - Surgery [Unknown]
  - Defaecation disorder [Not Recovered/Not Resolved]

NARRATIVE: CASE EVENT DATE: 20230101
